FAERS Safety Report 12355065 (Version 7)
Quarter: 2017Q1

REPORT INFORMATION
  Report Type: Report from Study
  Country: DE (occurrence: DE)
  Receive Date: 20160511
  Receipt Date: 20170331
  Transmission Date: 20170428
  Serious: Yes (Death, Other)
  Sender: FDA-Public Use
  Company Number: DE-CELGENEUS-062-21660-13033089

PATIENT

DRUGS (13)
  1. PERTUZUMAB [Concomitant]
     Active Substance: PERTUZUMAB
     Indication: BREAST CANCER
     Dosage: 840 MG
     Route: 065
  2. PERTUZUMAB [Concomitant]
     Active Substance: PERTUZUMAB
     Dosage: 420 MG
     Route: 041
  3. ABRAXANE [Suspect]
     Active Substance: PACLITAXEL
     Dosage: 80 MG/M2
     Route: 041
  4. CYCLOPHOSPHAMIDE. [Concomitant]
     Active Substance: CYCLOPHOSPHAMIDE
     Indication: BREAST CANCER
     Dosage: G/M2
     Route: 065
  5. CYCLOPHOSPHAMIDE. [Concomitant]
     Active Substance: CYCLOPHOSPHAMIDE
     Dosage: 600 MG/M2
     Route: 065
  6. DOCETAXEL. [Concomitant]
     Active Substance: DOCETAXEL
     Indication: BREAST CANCER
     Dosage: 75 MG/M2
     Route: 065
  7. TRASTUZUMAB [Concomitant]
     Active Substance: TRASTUZUMAB
     Dosage: 6 MG/KG
     Route: 065
  8. EPIRUBICIN [Concomitant]
     Active Substance: EPIRUBICIN
     Indication: BREAST CANCER
     Dosage: 150 MG/M2
     Route: 065
  9. ABRAXANE [Suspect]
     Active Substance: PACLITAXEL
     Indication: BREAST CANCER
     Dosage: 100 MG/M2
     Route: 041
  10. EPIRUBICIN [Concomitant]
     Active Substance: EPIRUBICIN
     Dosage: 90 MG/M2
     Route: 065
  11. ABRAXANE [Suspect]
     Active Substance: PACLITAXEL
     Dosage: 150 MG/M2
     Route: 041
  12. ABRAXANE [Suspect]
     Active Substance: PACLITAXEL
     Dosage: 125 MG/M2
     Route: 041
  13. TRASTUZUMAB [Concomitant]
     Active Substance: TRASTUZUMAB
     Indication: BREAST CANCER
     Dosage: 8 MG/KG
     Route: 065

REACTIONS (84)
  - Lymphopenia [Unknown]
  - Rash maculo-papular [Unknown]
  - Fatigue [Unknown]
  - Myalgia [Unknown]
  - Asthenia [Unknown]
  - Oedema [Unknown]
  - Respiratory disorder [Unknown]
  - Dizziness [Unknown]
  - Angiopathy [Unknown]
  - Ear disorder [Unknown]
  - Stomatitis [Unknown]
  - Hypersensitivity [Unknown]
  - Dyspnoea [Unknown]
  - Thrombocytopenia [Unknown]
  - Anaphylactic reaction [Unknown]
  - Cardiac failure congestive [Unknown]
  - Procedural complication [Unknown]
  - Blood creatinine increased [Unknown]
  - Hypotension [Unknown]
  - Alopecia [Unknown]
  - Blood bilirubin increased [Unknown]
  - Hot flush [Unknown]
  - Dysgeusia [Unknown]
  - Musculoskeletal disorder [Unknown]
  - Reproductive tract disorder [Unknown]
  - Nervous system disorder [Unknown]
  - Peripheral sensory neuropathy [Not Recovered/Not Resolved]
  - Diarrhoea [Unknown]
  - Rash [Unknown]
  - Metabolic disorder [Unknown]
  - Investigation [Unknown]
  - Inner ear disorder [Unknown]
  - Death [Fatal]
  - Infection [Unknown]
  - Aspartate aminotransferase increased [Unknown]
  - Febrile neutropenia [Unknown]
  - Injury [Unknown]
  - Nail disorder [Unknown]
  - Gastrointestinal disorder [Unknown]
  - Dyspepsia [Unknown]
  - Mental disorder [Unknown]
  - Dry eye [Unknown]
  - Alanine aminotransferase increased [Unknown]
  - Mucosal inflammation [Unknown]
  - Anaemia [Unknown]
  - Nausea [Unknown]
  - Cranial nerve disorder [Unknown]
  - Sleep disorder [Unknown]
  - Constipation [Unknown]
  - Hypertension [Unknown]
  - Abdominal pain [Unknown]
  - Renal disorder [Unknown]
  - Soft tissue disorder [Unknown]
  - Vomiting [Unknown]
  - Embolism [Unknown]
  - Cardiac disorder [Unknown]
  - Decreased appetite [Unknown]
  - Eye disorder [Unknown]
  - Bone pain [Unknown]
  - Cough [Unknown]
  - Abdominal pain upper [Unknown]
  - Pain [Unknown]
  - Back pain [Unknown]
  - Parosmia [Unknown]
  - Pyrexia [Unknown]
  - Blood alkaline phosphatase increased [Unknown]
  - Pulmonary embolism [Unknown]
  - Leukopenia [Unknown]
  - Palmar-plantar erythrodysaesthesia syndrome [Unknown]
  - Poisoning [Unknown]
  - Headache [Unknown]
  - Disease progression [Unknown]
  - Arthralgia [Unknown]
  - Ejection fraction decreased [Unknown]
  - Dermatitis acneiform [Unknown]
  - Hyperhidrosis [Unknown]
  - Oesophagitis [Unknown]
  - Neutropenia [Unknown]
  - Macular oedema [Unknown]
  - Epistaxis [Unknown]
  - Skin disorder [Unknown]
  - Dry skin [Unknown]
  - Lacrimation increased [Unknown]
  - Urinary tract disorder [Unknown]
